FAERS Safety Report 17017220 (Version 1)
Quarter: 2019Q4

REPORT INFORMATION
  Report Type: Spontaneous
  Country: US (occurrence: US)
  Receive Date: 20191111
  Receipt Date: 20191111
  Transmission Date: 20200122
  Serious: Yes (Hospitalization, Other)
  Sender: FDA-Public Use
  Company Number: US-ELI_LILLY_AND_COMPANY-US201911003223

PATIENT
  Age: 51 Year
  Sex: Male

DRUGS (2)
  1. NOVOLOG [Concomitant]
     Active Substance: INSULIN ASPART
     Indication: PRODUCT USED FOR UNKNOWN INDICATION
  2. BASAGLAR [Suspect]
     Active Substance: INSULIN GLARGINE
     Indication: DIABETES MELLITUS
     Dosage: 40 DOSAGE FORM, DAILY
     Route: 065
     Dates: start: 201903

REACTIONS (4)
  - Myocardial infarction [Unknown]
  - Blood glucose increased [Recovering/Resolving]
  - Cardioversion [Unknown]
  - Accidental exposure to product [Unknown]
